FAERS Safety Report 8617180-4 (Version None)
Quarter: 2012Q3

REPORT INFORMATION
  Report Type: 
  Country: None (occurrence: None)
  Receive Date: 20120823
  Receipt Date: 20120816
  Transmission Date: 20120928
  Serious: Yes (Other)
  Sender: FDA-Public Use
  Company Number: PHHY2012GB071707

PATIENT
  Sex: Female

DRUGS (2)
  1. ENOXAPARIN [Suspect]
     Indication: MITRAL VALVE DISEASE
     Dosage: 60 MG, BID
  2. ENOXAPARIN [Suspect]
     Dosage: 90 MG, BID

REACTIONS (4)
  - MATERNAL EXPOSURE DURING PREGNANCY [None]
  - CARDIAC VALVE REPLACEMENT COMPLICATION [None]
  - PULMONARY OEDEMA [None]
  - PREMATURE LABOUR [None]
